FAERS Safety Report 6437633-7 (Version None)
Quarter: 2009Q4

REPORT INFORMATION
  Report Type: 
  Country: None (occurrence: None)
  Receive Date: 20091112
  Receipt Date: 20091110
  Transmission Date: 20100525
  Serious: Yes (Hospitalization, Congenital Anomaly)
  Sender: FDA-Public Use
  Company Number: A0782591A

PATIENT
  Sex: Male
  Weight: 3.3 kg

DRUGS (4)
  1. PAXIL [Suspect]
     Indication: DEPRESSION
     Dosage: 20MG PER DAY
     Dates: start: 20030205, end: 20050127
  2. PAROXETINE HYDROCHLORIDE [Suspect]
     Indication: DEPRESSION
     Dosage: 20MG PER DAY
     Dates: start: 20030205, end: 20050127
  3. VITAMIN TAB [Concomitant]
  4. AMOXICILLIN [Concomitant]

REACTIONS (14)
  - ASTHMA [None]
  - AUTISM [None]
  - BRAIN MASS [None]
  - BRONCHIOLITIS [None]
  - CARDIOMEGALY [None]
  - CONGENITAL AORTIC STENOSIS [None]
  - DRUG EXPOSURE DURING PREGNANCY [None]
  - EPILEPSY [None]
  - GASTROOESOPHAGEAL REFLUX DISEASE [None]
  - MIGRAINE [None]
  - MITRAL VALVE INCOMPETENCE [None]
  - MULTIPLE CONGENITAL ABNORMALITIES [None]
  - PULMONARY VALVE STENOSIS [None]
  - RESPIRATORY DISTRESS [None]
